FAERS Safety Report 5277057-1 (Version None)
Quarter: 2007Q1

REPORT INFORMATION
  Report Type: 
  Country: None (occurrence: None)
  Receive Date: 20070327
  Receipt Date: 20070228
  Transmission Date: 20070707
  Serious: No
  Sender: FDA-Public Use
  Company Number: US-BRISTOL-MYERS SQUIBB COMPANY-13696307

PATIENT
  Age: 54 Year
  Sex: Female
  Weight: 89 kg

DRUGS (12)
  1. ORENCIA [Suspect]
     Indication: RHEUMATOID ARTHRITIS
     Route: 042
     Dates: start: 20070202, end: 20070220
  2. ZOLOFT [Concomitant]
  3. DIAZEPAM [Concomitant]
  4. METHADONE HCL [Concomitant]
  5. SOMA [Concomitant]
  6. MORPHINE [Concomitant]
  7. NEURONTIN [Concomitant]
  8. TOPROL-XL [Concomitant]
  9. ACYCLOVIR [Concomitant]
  10. METHOTREXATE [Concomitant]
  11. VYTORIN [Concomitant]
  12. FOLIC ACID [Concomitant]

REACTIONS (2)
  - DYSPNOEA [None]
  - PALPITATIONS [None]
